FAERS Safety Report 9358711 (Version 1)
Quarter: 2013Q2

REPORT INFORMATION
  Report Type: Spontaneous
  Country: DK (occurrence: DK)
  Receive Date: 20130620
  Receipt Date: 20130620
  Transmission Date: 20140414
  Serious: Yes (Other)
  Sender: FDA-Public Use
  Company Number: DK-ABBOTT-13P-044-1104267-00

PATIENT
  Age: 44 Year
  Sex: Female
  Weight: 72 kg

DRUGS (2)
  1. HUMIRA [Suspect]
     Indication: CROHN^S DISEASE
     Dosage: START DOSE
     Route: 058
     Dates: start: 20130610, end: 20130610
  2. DERMOVAT OINTMENT [Concomitant]
     Indication: PUSTULAR PSORIASIS

REACTIONS (5)
  - Convulsion [Recovered/Resolved]
  - Foaming at mouth [Recovered/Resolved]
  - Joint injury [Unknown]
  - Head injury [Unknown]
  - Syncope [Unknown]
